APPROVED DRUG PRODUCT: OPTIRAY 240
Active Ingredient: IOVERSOL
Strength: 51%
Dosage Form/Route: INJECTABLE;INJECTION
Application: N020923 | Product #001
Applicant: LIEBEL-FLARSHEIM CO LLC
Approved: May 28, 1998 | RLD: No | RS: No | Type: DISCN